FAERS Safety Report 20046140 (Version 5)
Quarter: 2022Q3

REPORT INFORMATION
  Report Type: Report from Study
  Country: CO (occurrence: CO)
  Receive Date: 20211109
  Receipt Date: 20220908
  Transmission Date: 20221027
  Serious: Yes (Other)
  Sender: FDA-Public Use
  Company Number: CO-ABBVIE-20K-036-3411257-00

PATIENT
  Age: 72 Year
  Sex: Male
  Weight: 85 kg

DRUGS (3)
  1. HUMIRA [Suspect]
     Active Substance: ADALIMUMAB
     Indication: Ankylosing spondylitis
     Route: 058
     Dates: start: 20081215
  2. HUMIRA [Suspect]
     Active Substance: ADALIMUMAB
     Indication: Ankylosing spondylitis
     Route: 058
     Dates: end: 20211106
  3. HUMIRA [Suspect]
     Active Substance: ADALIMUMAB
     Route: 058

REACTIONS (14)
  - Urinary tract disorder [Not Recovered/Not Resolved]
  - Bladder disorder [Not Recovered/Not Resolved]
  - Prostatic disorder [Recovered/Resolved]
  - Hypoacusis [Recovering/Resolving]
  - External ear inflammation [Recovered/Resolved]
  - Malaise [Unknown]
  - Vertigo [Recovered/Resolved]
  - Prostatitis [Not Recovered/Not Resolved]
  - Hypoaesthesia [Recovered/Resolved]
  - Hypertension [Recovering/Resolving]
  - Headache [Recovered/Resolved]
  - Headache [Not Recovered/Not Resolved]
  - Ankylosing spondylitis [Recovering/Resolving]
  - Spinal pain [Recovering/Resolving]

NARRATIVE: CASE EVENT DATE: 20200501
